FAERS Safety Report 10084705 (Version 2)
Quarter: 2014Q2

REPORT INFORMATION
  Report Type: Spontaneous
  Country: US (occurrence: US)
  Receive Date: 20140417
  Receipt Date: 20140513
  Transmission Date: 20141212
  Serious: Yes (Death, Hospitalization)
  Sender: FDA-Public Use
  Company Number: US-GLAXOSMITHKLINE-A1069682A

PATIENT
  Age: 80 Year
  Sex: Male
  Weight: 77 kg

DRUGS (1)
  1. MELPHALAN [Suspect]
     Indication: PLASMA CELL MYELOMA
     Dosage: 2MG PER DAY
     Route: 048
     Dates: start: 20140108, end: 20140114

REACTIONS (11)
  - Death [Fatal]
  - Renal failure acute [Unknown]
  - Staphylococcal infection [Unknown]
  - Staphylococcal sepsis [Unknown]
  - Renal failure [Unknown]
  - Pulmonary oedema [Unknown]
  - Hallucination [Unknown]
  - Confusional state [Unknown]
  - Ankle fracture [Unknown]
  - Wound [Unknown]
  - Adverse event [Unknown]
